FAERS Safety Report 19416524 (Version 4)
Quarter: 2021Q4

REPORT INFORMATION
  Report Type: Report from Study
  Country: ES (occurrence: ES)
  Receive Date: 20210614
  Receipt Date: 20211021
  Transmission Date: 20220303
  Serious: Yes (Hospitalization)
  Sender: FDA-Public Use
  Company Number: ES-PFIZER INC-2021666160

PATIENT
  Age: 71 Year
  Sex: Male
  Weight: 86 kg

DRUGS (13)
  1. ENCORAFENIB [Suspect]
     Active Substance: ENCORAFENIB
     Indication: Neoplasm
     Dosage: 450 MG, ONCE DAILY CONTINUOUS SINCE DAY 1
     Route: 048
     Dates: start: 20210127, end: 20210604
  2. BINIMETINIB [Suspect]
     Active Substance: BINIMETINIB
     Indication: Neoplasm
     Dosage: 45 MG, TWICE DAILY CONTINUOUS SINCE DAY 1
     Route: 048
     Dates: start: 20210127, end: 20210604
  3. LOSARTAN [Suspect]
     Active Substance: LOSARTAN
     Dosage: 25 MG, DAY -7, DAY 1 AND DAY 14
     Route: 048
     Dates: start: 20210120, end: 20210209
  4. MIDAZOLAM [Suspect]
     Active Substance: MIDAZOLAM
     Dosage: 2 MG, DAY -7, DAY 1 AND DAY 14
     Route: 048
     Dates: start: 20210120, end: 20210209
  5. OMEPRAZOLE [Suspect]
     Active Substance: OMEPRAZOLE
     Dosage: 20 MG, DAY -7, DAY 1 AND DAY 14
     Route: 048
     Dates: start: 20210120, end: 20210209
  6. DEXTROMETHORPHAN [Suspect]
     Active Substance: DEXTROMETHORPHAN
     Dosage: 30 MG, DAY -7, DAY 1 AND DAY 14
     Route: 048
     Dates: start: 20210120, end: 20210209
  7. CAFFEINE [Suspect]
     Active Substance: CAFFEINE
     Dosage: 50 MG, DAY -7, DAY 1 AND DAY 14
     Route: 048
     Dates: start: 20210120, end: 20210209
  8. LEVOTHYROXINE SODIUM [Concomitant]
     Active Substance: LEVOTHYROXINE SODIUM
     Indication: Hypothyroidism
     Dosage: 100 UG, 1X/DAY
     Route: 048
  9. TIOTROPIUM BROMIDE [Concomitant]
     Active Substance: TIOTROPIUM BROMIDE
     Indication: Chronic obstructive pulmonary disease
     Dosage: 18 UG, 1X/DAY
     Route: 055
  10. VILANTEROL TRIFENATATE [Concomitant]
     Active Substance: VILANTEROL TRIFENATATE
     Indication: Chronic obstructive pulmonary disease
     Dosage: 92 UG, 1X/DAY
     Route: 055
  11. FLUTICASONE FUROATE [Concomitant]
     Active Substance: FLUTICASONE FUROATE
     Indication: Chronic obstructive pulmonary disease
     Dosage: 22 UG, 1X/DAY
     Route: 055
  12. DEXAMETHASONE [Concomitant]
     Active Substance: DEXAMETHASONE
     Indication: Bone pain
     Dosage: 4 MG, 1X/DAY
     Route: 048
     Dates: start: 20210209
  13. MORPHINE SULFATE [Concomitant]
     Active Substance: MORPHINE SULFATE
     Indication: Bone pain
     Dosage: 25 MG, 2X/DAY
     Route: 048
     Dates: start: 20210315

REACTIONS (1)
  - Head injury [Recovered/Resolved]

NARRATIVE: CASE EVENT DATE: 20210604
